FAERS Safety Report 8590723-5 (Version None)
Quarter: 2012Q3

REPORT INFORMATION
  Report Type: 
  Country: None (occurrence: None)
  Receive Date: 20120813
  Receipt Date: 20120809
  Transmission Date: 20120928
  Serious: Yes (Other)
  Sender: FDA-Public Use
  Company Number: DE-ABBOTT-12P-062-0966893-00

PATIENT
  Sex: Male

DRUGS (2)
  1. HUMIRA [Suspect]
     Indication: CROHN'S DISEASE
     Route: 058
     Dates: start: 20110905
  2. CORTISONE ACETATE [Suspect]
     Indication: CROHN'S DISEASE
     Dates: start: 20120101, end: 20120101

REACTIONS (1)
  - DIABETES MELLITUS [None]
